FAERS Safety Report 25919020 (Version 1)
Quarter: 2025Q4

REPORT INFORMATION
  Report Type: Spontaneous
  Country: CA (occurrence: CA)
  Receive Date: 20251014
  Receipt Date: 20251014
  Transmission Date: 20260117
  Serious: Yes (Hospitalization, Other)
  Sender: CELLTRION
  Company Number: CA-CELLTRION INC.-2025CA036658

PATIENT

DRUGS (1)
  1. INFLIXIMAB [Suspect]
     Active Substance: INFLIXIMAB
     Indication: Product used for unknown indication
     Dosage: 5 MG/KG
     Route: 065

REACTIONS (9)
  - Drug level below therapeutic [Unknown]
  - Granulomatous liver disease [Unknown]
  - Liver function test abnormal [Unknown]
  - Pancreatitis acute [Unknown]
  - Chest discomfort [Unknown]
  - Drug specific antibody present [Unknown]
  - Fatigue [Unknown]
  - Pruritus [Unknown]
  - Off label use [Unknown]
